FAERS Safety Report 15440567 (Version 1)
Quarter: 2018Q3

REPORT INFORMATION
  Report Type: Spontaneous
  Country: US (occurrence: US)
  Receive Date: 20180928
  Receipt Date: 20180928
  Transmission Date: 20181010
  Serious: No
  Sender: FDA-Public Use
  Company Number: US-NOVOPROD-605134

PATIENT
  Age: 78 Year
  Sex: Male

DRUGS (1)
  1. OZEMPIC [Suspect]
     Active Substance: SEMAGLUTIDE
     Indication: DIABETES MELLITUS
     Dosage: UNK
     Route: 058

REACTIONS (13)
  - Diplopia [Unknown]
  - Decreased appetite [Unknown]
  - Discomfort [Unknown]
  - Bone pain [Unknown]
  - Grip strength decreased [Unknown]
  - Amnesia [Unknown]
  - Arthralgia [Unknown]
  - Myalgia [Unknown]
  - Cough [Unknown]
  - Weight decreased [Unknown]
  - Lethargy [Unknown]
  - Disorganised speech [Recovered/Resolved]
  - Asthenia [Unknown]
